FAERS Safety Report 7769522-X (Version None)
Quarter: 2011Q3

REPORT INFORMATION
  Report Type: 
  Country: None (occurrence: None)
  Receive Date: 20110922
  Receipt Date: 20110705
  Transmission Date: 20111222
  Serious: No
  Sender: FDA-Public Use
  Company Number: US-ASTRAZENECA-2011SE40107

PATIENT
  Age: 18 Year
  Sex: Male

DRUGS (3)
  1. MELATONIN [Concomitant]
  2. SEROQUEL XR [Suspect]
     Indication: ABNORMAL SLEEP-RELATED EVENT
     Route: 048
     Dates: start: 20000101
  3. SEROQUEL XR [Suspect]
     Indication: SLEEP DISORDER
     Route: 048
     Dates: start: 20000101

REACTIONS (5)
  - DRUG DOSE OMISSION [None]
  - MOOD SWINGS [None]
  - MUSCLE SPASMS [None]
  - INSOMNIA [None]
  - VOMITING [None]
